FAERS Safety Report 11988547 (Version 2)
Quarter: 2016Q1

REPORT INFORMATION
  Report Type: Spontaneous
  Country: PK (occurrence: PK)
  Receive Date: 20160202
  Receipt Date: 20160209
  Transmission Date: 20160526
  Serious: Yes (Other)
  Sender: FDA-Public Use
  Company Number: PK-NOVOPROD-477772

PATIENT
  Age: 62 Year
  Sex: Male
  Weight: 75 kg

DRUGS (5)
  1. LOWPLAT [Concomitant]
     Dosage: 75 MG, QD
     Route: 065
     Dates: start: 20151124
  2. HYDRALAZINE [Concomitant]
     Active Substance: HYDRALAZINE HYDROCHLORIDE
     Dosage: 25 MG, QD
     Route: 065
     Dates: start: 20151124
  3. X-PLENDED [Concomitant]
     Dosage: 20 MG, QD
     Route: 065
     Dates: start: 20151224
  4. ASCARD [Concomitant]
     Dosage: 100 MG, QD
     Route: 065
     Dates: start: 20151124
  5. MIXTARD HUMAN 70/30 [Suspect]
     Active Substance: INSULIN HUMAN
     Indication: TYPE 2 DIABETES MELLITUS
     Dosage: 50 U, QD (26 U/MORNING + 24 U/NIGHT)
     Route: 065
     Dates: start: 20140201

REACTIONS (2)
  - Aortic stenosis [Not Recovered/Not Resolved]
  - Diabetes mellitus inadequate control [Not Recovered/Not Resolved]

NARRATIVE: CASE EVENT DATE: 201511
